FAERS Safety Report 15892839 (Version 1)
Quarter: 2019Q1

REPORT INFORMATION
  Report Type: Report from Study
  Country: US (occurrence: US)
  Receive Date: 20190130
  Receipt Date: 20190130
  Transmission Date: 20190417
  Serious: No
  Sender: FDA-Public Use
  Company Number: US-EXELIXIS-CABO-18016453

PATIENT
  Sex: Male

DRUGS (15)
  1. MUPIROCIN. [Concomitant]
     Active Substance: MUPIROCIN
  2. LEVOTHYROXINE. [Concomitant]
     Active Substance: LEVOTHYROXINE
  3. HUMALOG [Concomitant]
     Active Substance: INSULIN LISPRO
  4. LOSARTAN POTASSIUM. [Concomitant]
     Active Substance: LOSARTAN POTASSIUM
  5. HYDROCODONE BITARTRATE AND ACETAMINOPHEN [Concomitant]
     Active Substance: ACETAMINOPHEN\HYDROCODONE BITARTRATE
  6. CABOMETYX [Suspect]
     Active Substance: CABOZANTINIB S-MALATE
     Indication: RENAL CANCER
     Dosage: 60 MG, QD
     Route: 048
  7. LEVETIRACETAM. [Concomitant]
     Active Substance: LEVETIRACETAM
  8. EZETIMIBE. [Concomitant]
     Active Substance: EZETIMIBE
  9. CANDESARTAN. [Concomitant]
     Active Substance: CANDESARTAN
  10. LANTUS [Concomitant]
     Active Substance: INSULIN GLARGINE
  11. AFINITOR [Concomitant]
     Active Substance: EVEROLIMUS
  12. AMLODIPINE [Concomitant]
     Active Substance: AMLODIPINE BESYLATE
  13. VITAMIN D [Concomitant]
     Active Substance: CHOLECALCIFEROL
  14. VALSARTAN. [Concomitant]
     Active Substance: VALSARTAN
  15. DEXAMETHASONE. [Concomitant]
     Active Substance: DEXAMETHASONE

REACTIONS (5)
  - Fatigue [Not Recovered/Not Resolved]
  - Contusion [Unknown]
  - Abdominal discomfort [Not Recovered/Not Resolved]
  - Diarrhoea [Not Recovered/Not Resolved]
  - Hypertension [Not Recovered/Not Resolved]
